FAERS Safety Report 4796436-X (Version None)
Quarter: 2005Q4

REPORT INFORMATION
  Report Type: 
  Country: None (occurrence: None)
  Receive Date: 20051011
  Receipt Date: 20040914
  Transmission Date: 20060501
  Serious: Yes (Other)
  Sender: FDA-Public Use
  Company Number: 2004-09-0913

PATIENT
  Age: 53 Year
  Sex: Female
  Weight: 60.3284 kg

DRUGS (6)
  1. TEMODAR [Suspect]
     Indication: GLIOBLASTOMA MULTIFORME
     Dosage: ORAL
     Route: 048
     Dates: start: 20021216, end: 20040223
  2. RADIATION THERAPY [Suspect]
     Indication: GLIOBLASTOMA MULTIFORME
     Dosage: 66 GY (TOTAL) X-RAY THER
     Dates: start: 20021216, end: 20040223
  3. DILANTIN [Concomitant]
  4. DECADRON [Concomitant]
  5. PREVACID [Concomitant]
  6. TOPROL-XL [Concomitant]

REACTIONS (6)
  - AMNESIA [None]
  - BALANCE DISORDER [None]
  - CONVULSION [None]
  - DISEASE RECURRENCE [None]
  - FATIGUE [None]
  - HEADACHE [None]
